FAERS Safety Report 12216299 (Version 2)
Quarter: 2016Q2

REPORT INFORMATION
  Report Type: Report from Study
  Country: US (occurrence: US)
  Receive Date: 20160329
  Receipt Date: 20160429
  Transmission Date: 20160815
  Serious: Yes (Hospitalization, Other)
  Sender: FDA-Public Use
  Company Number: US-ROCHE-1729687

PATIENT
  Age: 46 Year
  Sex: Male
  Weight: 90 kg

DRUGS (8)
  1. BEVACIZUMAB [Suspect]
     Active Substance: BEVACIZUMAB
     Indication: GLIOBLASTOMA
     Dosage: 10 MG/KG QOW
     Route: 042
     Dates: start: 20120406
  2. KEPPRA [Concomitant]
     Active Substance: LEVETIRACETAM
     Route: 065
  3. COLACE [Concomitant]
     Active Substance: DOCUSATE SODIUM
     Route: 048
  4. CARMUSTINE/POLIFEPROSAN 20 [Suspect]
     Active Substance: CARMUSTINE
     Indication: GLIOBLASTOMA
     Route: 065
     Dates: start: 20120224
  5. PEPCID [Concomitant]
     Active Substance: FAMOTIDINE
     Route: 048
  6. RISPERDAL [Concomitant]
     Active Substance: RISPERIDONE
     Route: 048
  7. TEMOZOLOMIDE. [Suspect]
     Active Substance: TEMOZOLOMIDE
     Indication: GLIOBLASTOMA
     Dosage: 75 MG/M2
     Route: 048
     Dates: start: 20120329, end: 20120519
  8. DECADRON [Concomitant]
     Active Substance: DEXAMETHASONE
     Route: 048

REACTIONS (3)
  - Embolism [Unknown]
  - Deep vein thrombosis [Unknown]
  - Pulmonary embolism [Unknown]

NARRATIVE: CASE EVENT DATE: 20120420
